FAERS Safety Report 13780332 (Version 1)
Quarter: 2017Q3

REPORT INFORMATION
  Report Type: Spontaneous
  Country: US (occurrence: US)
  Receive Date: 20170724
  Receipt Date: 20170724
  Transmission Date: 20171127
  Serious: No
  Sender: FDA-Public Use
  Company Number: US-SHIRE-US201714724

PATIENT
  Sex: Female

DRUGS (2)
  1. XIIDRA [Suspect]
     Active Substance: LIFITEGRAST
     Indication: SJOGREN^S SYNDROME
  2. XIIDRA [Suspect]
     Active Substance: LIFITEGRAST
     Indication: DRY EYE
     Route: 047

REACTIONS (5)
  - Instillation site reaction [Recovered/Resolved]
  - Eye pain [Unknown]
  - Vision blurred [Recovered/Resolved]
  - Malaise [Unknown]
  - Instillation site pain [Recovering/Resolving]
